FAERS Safety Report 5002552-X (Version None)
Quarter: 2006Q2

REPORT INFORMATION
  Report Type: 
  Country: None (occurrence: None)
  Receive Date: 20060515
  Receipt Date: 20060329
  Transmission Date: 20061013
  Serious: Yes (Hospitalization)
  Sender: FDA-Public Use
  Company Number: FR-MERCK-0603FRA00100

PATIENT
  Age: 53 Year
  Sex: Female
  Weight: 60 kg

DRUGS (8)
  1. ZOCOR [Suspect]
     Indication: HYPERCHOLESTEROLAEMIA
     Route: 048
     Dates: start: 20050701, end: 20050901
  2. ZOCOR [Suspect]
     Route: 048
     Dates: start: 20060101, end: 20060201
  3. FLUOXETINE HYDROCHLORIDE [Concomitant]
     Indication: DEPRESSION
     Route: 048
  4. FLUINDIONE [Suspect]
     Indication: CEREBROVASCULAR ACCIDENT
     Route: 048
     Dates: start: 20050701, end: 20060109
  5. FLUINDIONE [Suspect]
     Route: 048
     Dates: start: 20060217
  6. ROSUVASTATIN CALCIUM [Suspect]
     Indication: HYPERCHOLESTEROLAEMIA
     Route: 048
     Dates: start: 20050901, end: 20060109
  7. ROSUVASTATIN CALCIUM [Suspect]
     Route: 048
     Dates: start: 20060201
  8. SOTALOL HYDROCHLORIDE [Concomitant]
     Indication: CEREBROVASCULAR ACCIDENT
     Route: 048
     Dates: start: 20060201

REACTIONS (3)
  - DRUG INTERACTION [None]
  - HAEMATOMA [None]
  - INTERNATIONAL NORMALISED RATIO INCREASED [None]
